FAERS Safety Report 21381766 (Version 1)
Quarter: 2022Q3

REPORT INFORMATION
  Report Type: Other
  Country: None (occurrence: IT)
  Receive Date: 20220927
  Receipt Date: 20220927
  Transmission Date: 20221027
  Serious: Yes (Hospitalization)
  Sender: FDA-Public Use
  Company Number: IT-MLV Pharma LLC-2133231

PATIENT
  Age: 28 Year
  Sex: Male

DRUGS (2)
  1. BETAMETHASONE DIPROPIONATE [Suspect]
     Active Substance: BETAMETHASONE DIPROPIONATE
     Indication: Hepatitis infectious mononucleosis
     Route: 042
  2. BETAMETHASONE [Suspect]
     Active Substance: BETAMETHASONE
     Route: 048

REACTIONS (1)
  - Substance-induced psychotic disorder [Recovered/Resolved]
